FAERS Safety Report 21171783 (Version 2)
Quarter: 2022Q3

REPORT INFORMATION
  Report Type: Spontaneous
  Country: CA (occurrence: CA)
  Receive Date: 20220804
  Receipt Date: 20220805
  Transmission Date: 20221027
  Serious: Yes (Death)
  Sender: FDA-Public Use
  Company Number: CA-PFIZER INC-PV202200036269

PATIENT
  Age: 54 Year
  Sex: Male

DRUGS (1)
  1. BRAFTOVI [Suspect]
     Active Substance: ENCORAFENIB
     Dosage: 4 CAPSULES ONCE DAILY
     Dates: start: 20211006

REACTIONS (1)
  - Death [Fatal]

NARRATIVE: CASE EVENT DATE: 20220724
